FAERS Safety Report 21662405 (Version 2)
Quarter: 2022Q4

REPORT INFORMATION
  Report Type: Report from Study
  Country: US (occurrence: US)
  Receive Date: 20221130
  Receipt Date: 20221215
  Transmission Date: 20230112
  Serious: No
  Sender: FDA-Public Use
  Company Number: US-ABBVIE-4177283

PATIENT
  Age: 38 Year
  Sex: Male

DRUGS (1)
  1. RINVOQ [Suspect]
     Active Substance: UPADACITINIB
     Indication: Rheumatoid arthritis
     Route: 048
     Dates: start: 20220914

REACTIONS (8)
  - Insomnia [Unknown]
  - Vision blurred [Unknown]
  - Oral herpes [Unknown]
  - Oral herpes [Not Recovered/Not Resolved]
  - Swelling [Unknown]
  - Hypoaesthesia [Unknown]
  - Herpes zoster [Unknown]
  - Neck pain [Unknown]

NARRATIVE: CASE EVENT DATE: 20220916
